FAERS Safety Report 6244487-0 (Version None)
Quarter: 2009Q2

REPORT INFORMATION
  Report Type: 
  Country: None (occurrence: None)
  Receive Date: 20090619
  Receipt Date: 20090508
  Transmission Date: 20091009
  Serious: No
  Sender: FDA-Public Use
  Company Number: SPV1-2009-00911

PATIENT
  Sex: Male
  Weight: 29.5 kg

DRUGS (1)
  1. VYVANSE [Suspect]
     Indication: ATTENTION DEFICIT/HYPERACTIVITY DISORDER
     Dosage: 30 MG, 1X/DAY:QD, ORAL
     Route: 048
     Dates: start: 20080101, end: 20080101

REACTIONS (5)
  - AGGRESSION [None]
  - ANOREXIA [None]
  - CRYING [None]
  - HOSTILITY [None]
  - INSOMNIA [None]
